FAERS Safety Report 4846415-9 (Version None)
Quarter: 2005Q4

REPORT INFORMATION
  Report Type: 
  Country: None (occurrence: None)
  Receive Date: 20051201
  Receipt Date: 20051117
  Transmission Date: 20060501
  Serious: Yes (Hospitalization)
  Sender: FDA-Public Use
  Company Number: 2005P1000432

PATIENT
  Age: 77 Year
  Sex: Male
  Weight: 67 kg

DRUGS (13)
  1. RETEPLASE (RETEPLASE) [Suspect]
     Indication: ACUTE MYOCARDIAL INFARCTION
     Dosage: 5 IU;X2;IV
     Route: 042
     Dates: start: 20041119, end: 20041119
  2. ABCIXIMAB (ABCIXIMAB) [Suspect]
     Indication: ACUTE MYOCARDIAL INFARCTION
     Dosage: IV
     Route: 042
     Dates: start: 20041119
  3. ASPIRIN [Concomitant]
  4. TICLOPIDINE HCL [Concomitant]
  5. CARVEDILOL [Concomitant]
  6. ISOSORBIDE MONONITRATE [Concomitant]
  7. RAMIPRIL [Concomitant]
  8. FUROSEMIDE [Concomitant]
  9. WARFARIN SODIUM [Concomitant]
  10. ENALAPRIL [Concomitant]
  11. AMIODARONE HCL [Concomitant]
  12. NORFLOXACIN [Concomitant]
  13. NYSTATIN [Concomitant]

REACTIONS (7)
  - AKATHISIA [None]
  - CARDIOGENIC SHOCK [None]
  - CONFABULATION [None]
  - ELECTROMECHANICAL DISSOCIATION [None]
  - HYPOTENSION [None]
  - ISCHAEMIC STROKE [None]
  - LACUNAR INFARCTION [None]
